FAERS Safety Report 10448391 (Version 1)
Quarter: 2014Q3

REPORT INFORMATION
  Report Type: Spontaneous
  Country: US (occurrence: US)
  Receive Date: 20140911
  Receipt Date: 20140911
  Transmission Date: 20150326
  Serious: Yes (Congenital Anomaly)
  Sender: FDA-Public Use
  Company Number: US-ABBVIE-14P-163-1279454-00

PATIENT
  Sex: Male

DRUGS (1)
  1. DEPAKOTE [Suspect]
     Active Substance: DIVALPROEX SODIUM
     Indication: MATERNAL EXPOSURE TIMING UNSPECIFIED
     Route: 064

REACTIONS (19)
  - Dysgraphia [Unknown]
  - Aggression [Unknown]
  - Injury [Unknown]
  - Emotional distress [Unknown]
  - Cognitive disorder [Unknown]
  - Communication disorder [Unknown]
  - Congenital neurological disorder [Unknown]
  - Abnormal behaviour [Unknown]
  - Sensory disturbance [Unknown]
  - Speech disorder [Unknown]
  - Foetal exposure during pregnancy [Unknown]
  - Hypotonia neonatal [Unknown]
  - Mental impairment [Unknown]
  - Speech disorder developmental [Unknown]
  - Disturbance in social behaviour [Unknown]
  - Pain [Unknown]
  - Autism [Unknown]
  - Attention deficit/hyperactivity disorder [Unknown]
  - Anhedonia [Unknown]
